FAERS Safety Report 24909805 (Version 1)
Quarter: 2025Q1

REPORT INFORMATION
  Report Type: Spontaneous
  Country: US (occurrence: US)
  Receive Date: 20250131
  Receipt Date: 20250131
  Transmission Date: 20250409
  Serious: No
  Sender: PERRIGO
  Company Number: US-PERRIGO-24US005044

PATIENT
  Sex: Female
  Weight: 63.492 kg

DRUGS (8)
  1. CETIRIZINE HYDROCHLORIDE [Suspect]
     Active Substance: CETIRIZINE HYDROCHLORIDE
     Indication: Perennial allergy
     Dosage: 10 MG, QAM
     Route: 048
     Dates: start: 2022
  2. CETIRIZINE HYDROCHLORIDE [Suspect]
     Active Substance: CETIRIZINE HYDROCHLORIDE
     Dosage: 10 MG, QAM
     Route: 048
     Dates: end: 20240516
  3. LOSARTAN [Concomitant]
     Active Substance: LOSARTAN
     Indication: Blood pressure abnormal
     Route: 065
     Dates: start: 2004
  4. LOVASTATIN [Concomitant]
     Active Substance: LOVASTATIN
     Indication: Blood cholesterol abnormal
     Route: 065
     Dates: start: 2004
  5. VITAMINS NOS [Concomitant]
     Active Substance: VITAMINS
     Indication: Supplementation therapy
     Route: 065
  6. VITAMIN C [Concomitant]
     Active Substance: ASCORBIC ACID
     Indication: Supplementation therapy
     Route: 065
  7. ZINC [Concomitant]
     Active Substance: ZINC
     Indication: Supplementation therapy
     Route: 065
     Dates: start: 2020
  8. CALCIUM [Concomitant]
     Active Substance: CALCIUM
     Indication: Supplementation therapy
     Route: 065

REACTIONS (2)
  - Therapeutic product effect decreased [Unknown]
  - Product administered to patient of inappropriate age [Unknown]

NARRATIVE: CASE EVENT DATE: 20220101
